FAERS Safety Report 7033937-8 (Version None)
Quarter: 2010Q4

REPORT INFORMATION
  Report Type: 
  Country: None (occurrence: None)
  Receive Date: 20101007
  Receipt Date: 20101004
  Transmission Date: 20110411
  Serious: Yes (Disabling)
  Sender: FDA-Public Use
  Company Number: GB-MERCK-1010GBR00014

PATIENT
  Age: 75 Year
  Sex: Male
  Weight: 95 kg

DRUGS (6)
  1. ZOCOR [Suspect]
     Route: 048
     Dates: start: 20090416, end: 20090820
  2. ASPIRIN [Concomitant]
     Route: 048
  3. EZETIMIBE [Concomitant]
     Route: 048
  4. IRBESARTAN [Concomitant]
     Route: 048
  5. INSULIN GLARGINE [Concomitant]
     Route: 065
  6. INSULIN ASPART [Concomitant]
     Route: 065

REACTIONS (1)
  - GAIT DISTURBANCE [None]
